FAERS Safety Report 11940856 (Version 9)
Quarter: 2017Q2

REPORT INFORMATION
  Report Type: Report from Study
  Country: BR (occurrence: BR)
  Receive Date: 20160122
  Receipt Date: 20170407
  Transmission Date: 20170829
  Serious: Yes (Death, Hospitalization, Other)
  Sender: FDA-Public Use
  Company Number: PHHY2015BR084035

PATIENT
  Age: 46 Year
  Sex: Female
  Weight: 44 kg

DRUGS (6)
  1. EXJADE [Suspect]
     Active Substance: DEFERASIROX
     Dosage: 30 MG/KG, QD (3 DF OF 500 MG(1500MG) DAILY)
     Route: 048
  2. FOLIC ACID. [Concomitant]
     Active Substance: FOLIC ACID
     Indication: THALASSAEMIA
     Dosage: 1 DF OF 5 MG, QD
     Route: 048
  3. EXJADE [Suspect]
     Active Substance: DEFERASIROX
     Dosage: 8 DAYS
     Route: 042
  4. EXJADE [Suspect]
     Active Substance: DEFERASIROX
     Dosage: 1500 MG, QD
     Route: 048
  5. EXJADE [Suspect]
     Active Substance: DEFERASIROX
     Indication: THALASSAEMIA BETA
     Dosage: 30 MG/KG, QD (3 DF OF 500 MG)
     Route: 048
     Dates: start: 201408
  6. EXJADE [Suspect]
     Active Substance: DEFERASIROX
     Dosage: 250 MG, UNK
     Route: 048

REACTIONS (39)
  - Syncope [Unknown]
  - Loss of consciousness [Unknown]
  - Influenza [Unknown]
  - Cough [Unknown]
  - Purulent discharge [Unknown]
  - Dyspnoea [Recovered/Resolved]
  - Blood calcium decreased [Unknown]
  - Blood glucose decreased [Unknown]
  - Pain [Not Recovered/Not Resolved]
  - Cardiac siderosis [Unknown]
  - Cardiomegaly [Unknown]
  - Fluid retention [Unknown]
  - Liver disorder [Unknown]
  - Infection [Recovering/Resolving]
  - Inflammation [Unknown]
  - Fatigue [Recovered/Resolved]
  - Fluid retention [Recovered/Resolved]
  - Hepatic cirrhosis [Fatal]
  - Swelling [Recovering/Resolving]
  - Abasia [Unknown]
  - Hepatic cirrhosis [Recovered/Resolved]
  - Neoplasm [Recovered/Resolved]
  - Hepatic siderosis [Unknown]
  - Abdominal distension [Unknown]
  - Seizure [Unknown]
  - Weight decreased [Unknown]
  - Erysipelas [Not Recovered/Not Resolved]
  - Tumour haemorrhage [Unknown]
  - Hepatitis C [Unknown]
  - Visual impairment [Unknown]
  - Incorrect route of drug administration [Unknown]
  - Blood pressure decreased [Unknown]
  - Dysphonia [Unknown]
  - Abdominal distension [Recovered/Resolved]
  - Coma [Recovered/Resolved]
  - Micturition frequency decreased [Recovered/Resolved]
  - Blood iron increased [Unknown]
  - Malaise [Unknown]
  - Joint lock [Unknown]

NARRATIVE: CASE EVENT DATE: 201511
